FAERS Safety Report 4315487-2 (Version None)
Quarter: 2004Q1

REPORT INFORMATION
  Report Type: 
  Country: None (occurrence: None)
  Receive Date: 20040310
  Receipt Date: 20040226
  Transmission Date: 20041129
  Serious: Yes (Death)
  Sender: FDA-Public Use
  Company Number: 163-20785-04020126

PATIENT
  Age: 85 Year
  Sex: Male

DRUGS (1)
  1. THALOMID [Suspect]
     Indication: METASTATIC MALIGNANT MELANOMA
     Dosage: 100 MG DAILY ORAL
     Route: 048
     Dates: start: 20031111, end: 20031201

REACTIONS (2)
  - MALIGNANT MELANOMA [None]
  - MALIGNANT NEOPLASM PROGRESSION [None]
